FAERS Safety Report 23792877 (Version 2)
Quarter: 2024Q2

REPORT INFORMATION
  Report Type: Spontaneous
  Country: US (occurrence: None)
  Receive Date: 20240429
  Receipt Date: 20240501
  Transmission Date: 20240716
  Serious: Yes (Death, Hospitalization, Other)
  Sender: FDA-Public Use
  Company Number: 2024A098577

PATIENT
  Age: 30155 Day
  Sex: Female
  Weight: 50.8 kg

DRUGS (12)
  1. TRUQAP [Suspect]
     Active Substance: CAPIVASERTIB
     Indication: Breast cancer female
     Route: 048
     Dates: start: 20240128, end: 20240207
  2. FULVESTRANT [Suspect]
     Active Substance: FULVESTRANT
     Route: 030
  3. PROCHLORPERAZINE [Concomitant]
     Active Substance: PROCHLORPERAZINE
  4. ZOFRAN [Concomitant]
     Active Substance: ONDANSETRON HYDROCHLORIDE
  5. AMBIEN [Concomitant]
     Active Substance: ZOLPIDEM TARTRATE
  6. CALCIUM [Concomitant]
     Active Substance: CALCIUM
  7. ENTRESTO [Concomitant]
     Active Substance: SACUBITRIL\VALSARTAN
  8. MIRAPEX [Concomitant]
     Active Substance: PRAMIPEXOLE DIHYDROCHLORIDE
  9. ZOCOR [Concomitant]
     Active Substance: SIMVASTATIN
  10. ASPIRIN [Concomitant]
     Active Substance: ASPIRIN
  11. IMODIUM [Concomitant]
     Active Substance: LOPERAMIDE HYDROCHLORIDE
  12. MACROBID [Concomitant]
     Active Substance: NITROFURANTOIN\NITROFURANTOIN MONOHYDRATE

REACTIONS (34)
  - Diabetic ketoacidosis [Fatal]
  - Acute kidney injury [Fatal]
  - Acute myocardial infarction [Fatal]
  - Hyperkalaemia [Fatal]
  - Metastases to lung [Unknown]
  - Metastases to liver [Unknown]
  - Diarrhoea [Recovering/Resolving]
  - Decreased appetite [Unknown]
  - Dizziness [Unknown]
  - Asthenia [Unknown]
  - Urinary tract infection [Unknown]
  - Confusional state [Unknown]
  - Somnolence [Unknown]
  - Intensive care unit acquired weakness [Unknown]
  - Pollakiuria [Unknown]
  - Vomiting [Unknown]
  - Fatigue [Unknown]
  - Troponin increased [Unknown]
  - Cystitis [Unknown]
  - Shock [Unknown]
  - Mental impairment [Unknown]
  - Blood pH decreased [Unknown]
  - Illness [Unknown]
  - Abdominal discomfort [Unknown]
  - Eye disorder [Unknown]
  - Blood glucose abnormal [Unknown]
  - Dyspnoea [Unknown]
  - Hypoxia [Unknown]
  - Acidosis [Unknown]
  - Lactic acidosis [Unknown]
  - Hypotension [Unknown]
  - Tachycardia [Unknown]
  - Blood lactic acid increased [Unknown]
  - Acute kidney injury [Unknown]

NARRATIVE: CASE EVENT DATE: 20240201
